FAERS Safety Report 25562841 (Version 1)
Quarter: 2025Q3

REPORT INFORMATION
  Report Type: Spontaneous
  Country: US (occurrence: US)
  Receive Date: 20250716
  Receipt Date: 20250716
  Transmission Date: 20251021
  Serious: Yes (Death, Hospitalization)
  Sender: JOHNSON AND JOHNSON
  Company Number: US-JNJFOC-20250714671

PATIENT

DRUGS (1)
  1. CARVYKTI [Suspect]
     Active Substance: CILTACABTAGENE AUTOLEUCEL
     Indication: Product used for unknown indication

REACTIONS (10)
  - Death [Fatal]
  - Acute myocardial infarction [Unknown]
  - Cytopenia [Unknown]
  - Septic embolus [Unknown]
  - Clostridial sepsis [Recovered/Resolved]
  - Chronic kidney disease [Unknown]
  - Failure to thrive [Unknown]
  - Colitis [Unknown]
  - Sepsis [Unknown]
  - Cognitive disorder [Unknown]
